FAERS Safety Report 8376046-8 (Version None)
Quarter: 2012Q2

REPORT INFORMATION
  Report Type: 
  Country: None (occurrence: None)
  Receive Date: 20120522
  Receipt Date: 20120514
  Transmission Date: 20120825
  Serious: Yes (Other)
  Sender: FDA-Public Use
  Company Number: PHEH2012US010224

PATIENT
  Sex: Male

DRUGS (3)
  1. AFINITOR [Suspect]
     Indication: CEREBROVASCULAR DISORDER
     Dosage: 5 MG, DAILY
     Route: 048
     Dates: start: 20120405
  2. LAMICTAL [Concomitant]
  3. RISPERDAL [Concomitant]

REACTIONS (5)
  - MALAISE [None]
  - VOMITING [None]
  - IMMUNODEFICIENCY [None]
  - INFLUENZA LIKE ILLNESS [None]
  - CONVULSION [None]
